FAERS Safety Report 5143673-0 (Version None)
Quarter: 2006Q4

REPORT INFORMATION
  Report Type: 
  Country: None (occurrence: None)
  Receive Date: 20061103
  Receipt Date: 20061026
  Transmission Date: 20070319
  Serious: Yes (Other)
  Sender: FDA-Public Use
  Company Number: US-ROXANE LABORATORIES, INC-2006-DE-05697GD

PATIENT

DRUGS (1)
  1. NAPROXEN [Suspect]
     Indication: ANKYLOSING SPONDYLITIS

REACTIONS (2)
  - CHEST PAIN [None]
  - GASTROINTESTINAL HAEMORRHAGE [None]
